FAERS Safety Report 5486584-3 (Version None)
Quarter: 2007Q3

REPORT INFORMATION
  Report Type: 
  Country: None (occurrence: None)
  Receive Date: 20070920
  Receipt Date: 20070305
  Transmission Date: 20080115
  Serious: Yes (Hospitalization)
  Sender: FDA-Public Use
  Company Number: 07P-163-0361108-00

PATIENT
  Age: 85 Year
  Sex: Male
  Weight: 821.0106 kg

DRUGS (4)
  1. DEPAKOTE ER [Suspect]
     Indication: CONVULSION
     Dosage: 500 MG, 2 IN 1 TABLETS, 1 IN 1 EVENING, PER ORAL
     Route: 048
     Dates: start: 20060701
  2. DEPAKOTE ER [Suspect]
     Indication: NEUROPATHY
     Dosage: 500 MG, 2 IN 1 TABLETS, 1 IN 1 EVENING, PER ORAL
     Route: 048
     Dates: start: 20060701
  3. VITAMIN B [Concomitant]
  4. ASPIRIN [Concomitant]

REACTIONS (4)
  - AMNESIA [None]
  - CONVULSION [None]
  - STARING [None]
  - TREMOR [None]
